FAERS Safety Report 23358757 (Version 1)
Quarter: 2024Q1

REPORT INFORMATION
  Report Type: Spontaneous
  Country: CN (occurrence: CN)
  Receive Date: 20240102
  Receipt Date: 20240102
  Transmission Date: 20240410
  Serious: Yes (Other)
  Sender: FDA-Public Use
  Company Number: CN-FreseniusKabi-FK202321362

PATIENT
  Age: 71 Year
  Sex: Male
  Weight: 65 kg

DRUGS (7)
  1. EGG PHOSPHOLIPIDS\GLYCERIN\MEDIUM-CHAIN TRIGLYCERIDES\SOYBEAN OIL [Suspect]
     Active Substance: EGG PHOSPHOLIPIDS\GLYCERIN\MEDIUM-CHAIN TRIGLYCERIDES\SOYBEAN OIL
     Indication: Perforation
     Dosage: INJECTION ?INTRAVENOUS
     Dates: start: 20231203, end: 20231203
  2. DEXTROSE [Suspect]
     Active Substance: DEXTROSE\DEXTROSE MONOHYDRATE
     Indication: Perforation
     Dosage: INJECTION ?INTRAVENOUS
     Dates: start: 20231203, end: 20231203
  3. AMINO ACIDS [Suspect]
     Active Substance: AMINO ACIDS
     Indication: Perforation
     Dosage: INJECTION ?INTRAVENOUS
     Dates: start: 20231203, end: 20231203
  4. INSULIN HUMAN [Suspect]
     Active Substance: INSULIN HUMAN
     Indication: Perforation
     Dosage: INJECTION ?INTRAVENOUS?20
     Dates: start: 20231203, end: 20231203
  5. POTASSIUM CHLORIDE [Suspect]
     Active Substance: POTASSIUM CHLORIDE
     Indication: Perforation
     Dosage: INJECTION ?INTRAVENOUS
     Dates: start: 20231203, end: 20231203
  6. VITAMINS [Suspect]
     Active Substance: VITAMINS
     Indication: Perforation
     Dosage: INJECTION ?INTRAVENOUS
     Dates: start: 20231203, end: 20231203
  7. DEXTROSE [Suspect]
     Active Substance: DEXTROSE\DEXTROSE MONOHYDRATE
     Indication: Perforation
     Dosage: INJECTION ?INTRAVENOUS
     Dates: start: 20231203, end: 20231203

REACTIONS (2)
  - Chest discomfort [Recovering/Resolving]
  - Pyrexia [Recovering/Resolving]

NARRATIVE: CASE EVENT DATE: 20231203
